FAERS Safety Report 5370780-X (Version None)
Quarter: 2007Q2

REPORT INFORMATION
  Report Type: 
  Country: None (occurrence: None)
  Receive Date: 20070626
  Receipt Date: 20070419
  Transmission Date: 20071010
  Serious: Yes (Hospitalization)
  Sender: FDA-Public Use
  Company Number: B0465034A

PATIENT
  Age: 56 Year
  Sex: Female
  Weight: 66 kg

DRUGS (3)
  1. LAPATINIB [Suspect]
     Route: 048
     Dates: start: 20070217
  2. CAPECITABINE [Suspect]
     Dosage: 1650MG TWICE PER DAY
     Route: 048
     Dates: start: 20070313, end: 20070326
  3. LAPATINIB [Suspect]
     Dosage: 1250MG PER DAY
     Route: 042

REACTIONS (4)
  - DIZZINESS [None]
  - FEELING COLD [None]
  - HEADACHE [None]
  - PYREXIA [None]
